FAERS Safety Report 18480852 (Version 1)
Quarter: 2020Q4

REPORT INFORMATION
  Report Type: Spontaneous
  Country: NL (occurrence: NL)
  Receive Date: 20201109
  Receipt Date: 20201109
  Transmission Date: 20210114
  Serious: Yes (Other)
  Sender: FDA-Public Use
  Company Number: NL-VIRTUS PHARMACEUTICALS, LLC-2020VTS00082

PATIENT
  Age: 30 Year
  Sex: Female

DRUGS (6)
  1. ALBUTEROL. [Suspect]
     Active Substance: ALBUTEROL
     Indication: DYSPNOEA
     Dosage: CONTINUOUS, VIA NEBULIZATION
  2. POTASSIUM [Concomitant]
     Active Substance: POTASSIUM
     Route: 065
  3. 0.9% SODIUM CHLORIDE [Concomitant]
     Active Substance: SODIUM CHLORIDE
     Route: 065
  4. OSELTAMIVIR [Concomitant]
     Active Substance: OSELTAMIVIR
     Route: 048
  5. MAGNESIUM [Concomitant]
     Active Substance: MAGNESIUM
     Route: 065
  6. ALBUTEROL. [Suspect]
     Active Substance: ALBUTEROL
     Dosage: SWITCHED TO INTERVAL SCHEDULED DOSING

REACTIONS (1)
  - Lactic acidosis [Recovered/Resolved]
